FAERS Safety Report 13159842 (Version 1)
Quarter: 2017Q1

REPORT INFORMATION
  Report Type: Report from Study
  Country: CA (occurrence: CA)
  Receive Date: 20170127
  Receipt Date: 20170127
  Transmission Date: 20170428
  Serious: Yes (Death, Hospitalization, Other)
  Sender: FDA-Public Use
  Company Number: PHHY2017CA011026

PATIENT
  Age: 63 Year
  Sex: Female

DRUGS (22)
  1. LACTULOSE. [Concomitant]
     Active Substance: LACTULOSE
     Indication: PRODUCT USED FOR UNKNOWN INDICATION
     Dosage: 30 NG, BID
     Route: 065
  2. AZATHIOPRINE. [Concomitant]
     Active Substance: AZATHIOPRINE
     Dosage: 4 DF (50 MG), QHS
     Route: 065
  3. HYDROMORPH CONTIN [Concomitant]
     Active Substance: HYDROMORPHONE
     Indication: PRODUCT USED FOR UNKNOWN INDICATION
     Dosage: 18 MG, QD
     Route: 065
  4. DILAUDID [Concomitant]
     Active Substance: HYDROMORPHONE HYDROCHLORIDE
     Indication: PRODUCT USED FOR UNKNOWN INDICATION
     Dosage: 0.5 MG, Q6H
     Route: 065
  5. PHENYLEPHRINE [Concomitant]
     Active Substance: PHENYLEPHRINE\PHENYLEPHRINE HYDROCHLORIDE
     Indication: PRODUCT USED FOR UNKNOWN INDICATION
     Dosage: 200 MG, UNK
     Route: 042
  6. CYCLOBENZAPRINE [Concomitant]
     Active Substance: CYCLOBENZAPRINE
     Indication: PRODUCT USED FOR UNKNOWN INDICATION
     Dosage: 10 MG, QD
     Route: 065
  7. LANSOPRAZOLE. [Concomitant]
     Active Substance: LANSOPRAZOLE
     Indication: PRODUCT USED FOR UNKNOWN INDICATION
     Dosage: 30 MG, QD
     Route: 065
  8. JANUVIA [Concomitant]
     Active Substance: SITAGLIPTIN PHOSPHATE
     Indication: PRODUCT USED FOR UNKNOWN INDICATION
     Dosage: 100 MG, QD
     Route: 065
  9. SULFASALAZINE. [Concomitant]
     Active Substance: SULFASALAZINE
     Dosage: 2 DF, TID
     Route: 065
  10. PANTOPRAZOLE [Concomitant]
     Active Substance: PANTOPRAZOLE SODIUM
     Indication: PRODUCT USED FOR UNKNOWN INDICATION
     Dosage: 40 MG, QD
     Route: 042
  11. THIAMINE. [Concomitant]
     Active Substance: THIAMINE
     Indication: PRODUCT USED FOR UNKNOWN INDICATION
     Dosage: 100 MG, TID
     Route: 042
  12. PLAQUENIL [Concomitant]
     Active Substance: HYDROXYCHLOROQUINE SULFATE
     Indication: PRODUCT USED FOR UNKNOWN INDICATION
     Dosage: 200 MG, QD SIX DAYS PER WEEK
     Route: 065
  13. SULFASALAZINE. [Concomitant]
     Active Substance: SULFASALAZINE
     Indication: PRODUCT USED FOR UNKNOWN INDICATION
     Dosage: 500 MG, TID
     Route: 065
  14. HYDROMORPH CONTIN [Concomitant]
     Active Substance: HYDROMORPHONE
     Dosage: 18 MG, TID
     Route: 065
  15. ACLASTA [Suspect]
     Active Substance: ZOLEDRONIC ACID
     Indication: RHEUMATOID ARTHRITIS
     Dosage: UNK
     Route: 041
     Dates: start: 20151215
  16. HEPARIN [Concomitant]
     Active Substance: HEPARIN SODIUM
     Indication: PRODUCT USED FOR UNKNOWN INDICATION
     Dosage: 5000 U, Q12H
     Route: 065
  17. AZATHIOPRINE. [Concomitant]
     Active Substance: AZATHIOPRINE
     Indication: PRODUCT USED FOR UNKNOWN INDICATION
     Dosage: 200 MG, QD
     Route: 065
  18. EZETIMIBE. [Concomitant]
     Active Substance: EZETIMIBE
     Indication: PRODUCT USED FOR UNKNOWN INDICATION
     Dosage: 10 MG, QD
     Route: 065
  19. CEFTRIAXONE. [Concomitant]
     Active Substance: CEFTRIAXONE
     Indication: PRODUCT USED FOR UNKNOWN INDICATION
     Dosage: 1 G, QD
     Route: 065
  20. INDOMETHACIN. [Concomitant]
     Active Substance: INDOMETHACIN
     Indication: PRODUCT USED FOR UNKNOWN INDICATION
     Dosage: 50 MG, TID
     Route: 065
     Dates: start: 201309
  21. TALWIN [Concomitant]
     Active Substance: PENTAZOCINE LACTATE
     Indication: PRODUCT USED FOR UNKNOWN INDICATION
     Dosage: 50 MG, Q4-6 HOURS, PRN
     Route: 065
  22. CRESTOR [Concomitant]
     Active Substance: ROSUVASTATIN CALCIUM
     Indication: PRODUCT USED FOR UNKNOWN INDICATION
     Dosage: 20 MG, QD
     Route: 065

REACTIONS (40)
  - Hepatic failure [Fatal]
  - Altered state of consciousness [Unknown]
  - Fungal infection [Unknown]
  - Tachypnoea [Unknown]
  - Breath sounds abnormal [Unknown]
  - Abdominal hernia [Unknown]
  - Weight decreased [Unknown]
  - Vomiting [Unknown]
  - Constipation [Unknown]
  - Hypoxia [Unknown]
  - Cholangitis [Unknown]
  - Hypernatraemia [Unknown]
  - Chest pain [Unknown]
  - Acute kidney injury [Fatal]
  - Confusional state [Not Recovered/Not Resolved]
  - Memory impairment [Unknown]
  - Blood pressure decreased [Unknown]
  - Product use issue [Unknown]
  - Tachycardia [Unknown]
  - Abdominal distension [Unknown]
  - Malaise [Unknown]
  - Decreased appetite [Unknown]
  - Abdominal pain [Fatal]
  - Tenderness [Fatal]
  - Pituitary tumour [Unknown]
  - Hepatosplenomegaly [Unknown]
  - Blood lactic acid increased [Unknown]
  - Oedema peripheral [Unknown]
  - Hepatic encephalopathy [Unknown]
  - Lethargy [Unknown]
  - Metastasis [Unknown]
  - Blood glucose decreased [Unknown]
  - Pyrexia [Unknown]
  - Chills [Unknown]
  - Delirium [Fatal]
  - Renal failure [Fatal]
  - Oliguria [Fatal]
  - Shock [Not Recovered/Not Resolved]
  - Pulmonary mass [Unknown]
  - Bone lesion [Unknown]

NARRATIVE: CASE EVENT DATE: 201612
